FAERS Safety Report 9496468 (Version 1)
Quarter: 2013Q3

REPORT INFORMATION
  Report Type: Spontaneous
  Country: US (occurrence: None)
  Receive Date: 20130829
  Receipt Date: 20130829
  Transmission Date: 20140515
  Serious: Yes (Other)
  Sender: FDA-Public Use
  Company Number: LMI-2013-00347

PATIENT
  Age: 84 Year
  Sex: Female
  Weight: 47.17 kg

DRUGS (7)
  1. DEFINITY [Suspect]
     Indication: ECHOCARDIOGRAM
     Dosage: 1 VIAL DILUTED WITH 8.5 ML OF NORMAL SALINE (2 ML)
     Route: 040
     Dates: start: 20130815, end: 20130815
  2. ALBUTEROL (SLBUTAMOL) [Concomitant]
  3. ASPIRIN (ACETYLSALICYLIC ACID) [Concomitant]
  4. COZAAR (LOSARTAN POTASSIUM) [Concomitant]
  5. ZOCOR (SIMVASTATIN) [Concomitant]
  6. COREG (CARVEDILOL) [Concomitant]
  7. HEPARIN (HEPARIN) [Concomitant]

REACTIONS (6)
  - Anaphylactic reaction [None]
  - Blindness transient [None]
  - Dysgeusia [None]
  - Paraesthesia oral [None]
  - Rash [None]
  - Hypotension [None]
